FAERS Safety Report 25699956 (Version 1)
Quarter: 2025Q3

REPORT INFORMATION
  Report Type: Spontaneous
  Country: US (occurrence: US)
  Receive Date: 20250819
  Receipt Date: 20250819
  Transmission Date: 20251020
  Serious: Yes (Hospitalization, Other)
  Sender: ELITE
  Company Number: US-ELITEPHARMA-2025ELLIT00170

PATIENT
  Age: 39 Year
  Sex: Female

DRUGS (3)
  1. PHENTERMINE [Suspect]
     Active Substance: PHENTERMINE
     Indication: Weight decreased
     Route: 065
  2. FUROSEMIDE [Concomitant]
     Active Substance: FUROSEMIDE
     Route: 065
  3. SILDENAFIL [Concomitant]
     Active Substance: SILDENAFIL
     Route: 065

REACTIONS (1)
  - Right ventricular failure [Unknown]
